FAERS Safety Report 12863043 (Version 1)
Quarter: 2016Q4

REPORT INFORMATION
  Report Type: Spontaneous
  Country: IN (occurrence: IN)
  Receive Date: 20161019
  Receipt Date: 20161019
  Transmission Date: 20170207
  Serious: Yes (Other)
  Sender: FDA-Public Use
  Company Number: PHHY2016IN143186

PATIENT
  Age: 75 Year
  Sex: Male

DRUGS (1)
  1. ZOLEDRONATE [Suspect]
     Active Substance: ZOLEDRONIC ACID
     Indication: OSTEOPOROSIS
     Dosage: 4 MG, IN 100 ML NORMAL SALINE OVER 1 HOUR
     Route: 042

REACTIONS (2)
  - Hypocalcaemia [Recovering/Resolving]
  - Hypophosphataemia [Recovered/Resolved]
